FAERS Safety Report 10948084 (Version 1)
Quarter: 2015Q1

REPORT INFORMATION
  Report Type: Report from Study
  Country: US (occurrence: US)
  Receive Date: 20150324
  Receipt Date: 20150324
  Transmission Date: 20150721
  Serious: Yes (Death, Hospitalization, Other)
  Sender: FDA-Public Use
  Company Number: US-ROCHE-1017654

PATIENT
  Age: 55 Year
  Sex: Male
  Weight: 81.72 kg

DRUGS (3)
  1. PACLITAXEL. [Suspect]
     Active Substance: PACLITAXEL
     Indication: ADENOCARCINOMA
     Route: 065
     Dates: start: 20110825
  2. GEMCITABINE [Suspect]
     Active Substance: GEMCITABINE\GEMCITABINE HYDROCHLORIDE
     Indication: ADENOCARCINOMA
     Route: 065
     Dates: start: 20110825
  3. VISMODEGIB [Suspect]
     Active Substance: VISMODEGIB
     Indication: ADENOCARCINOMA
     Route: 065
     Dates: start: 20110921

REACTIONS (10)
  - Infection [Recovered/Resolved]
  - Fatigue [Recovered/Resolved with Sequelae]
  - Abdominal distension [Recovered/Resolved]
  - Sepsis [Not Recovered/Not Resolved]
  - Death [Fatal]
  - Nausea [Recovered/Resolved with Sequelae]
  - Ill-defined disorder [Recovered/Resolved]
  - Administration site reaction [Recovered/Resolved]
  - Vomiting [Recovered/Resolved with Sequelae]
  - Anaemia [Recovered/Resolved with Sequelae]

NARRATIVE: CASE EVENT DATE: 20110830
